FAERS Safety Report 18385674 (Version 1)
Quarter: 2020Q4

REPORT INFORMATION
  Report Type: Report from Study
  Country: US (occurrence: US)
  Receive Date: 20201015
  Receipt Date: 20201015
  Transmission Date: 20210114
  Serious: Yes (Hospitalization, Other)
  Sender: FDA-Public Use
  Company Number: US-ASTELLAS-2020US036052

PATIENT
  Age: 58 Year
  Sex: Male

DRUGS (1)
  1. ENZALUTAMIDE [Suspect]
     Active Substance: ENZALUTAMIDE
     Indication: PRODUCT USED FOR UNKNOWN INDICATION
     Dosage: 160 MG (4 TABLETS), ONCE DAILY
     Route: 048
     Dates: start: 2020

REACTIONS (3)
  - Pulmonary oedema [Unknown]
  - Cardiac failure congestive [Unknown]
  - Pneumonia [Unknown]

NARRATIVE: CASE EVENT DATE: 20200928
